FAERS Safety Report 4930814-0 (Version None)
Quarter: 2006Q1

REPORT INFORMATION
  Report Type: 
  Country: None (occurrence: None)
  Receive Date: 20060227
  Receipt Date: 20060216
  Transmission Date: 20060701
  Serious: Yes (Hospitalization)
  Sender: FDA-Public Use
  Company Number: 2006-00607

PATIENT
  Age: 35 Year
  Sex: Female

DRUGS (1)
  1. TRELSTAR [Suspect]
     Dosage: 11.25 MG, Q 3 MO, INTRAMUSCULAR
     Route: 030

REACTIONS (1)
  - MYOCARDIAL INFARCTION [None]
